FAERS Safety Report 21734931 (Version 7)
Quarter: 2023Q4

REPORT INFORMATION
  Report Type: Spontaneous
  Country: US (occurrence: US)
  Receive Date: 20221215
  Receipt Date: 20231012
  Transmission Date: 20240109
  Serious: Yes (Hospitalization, Other)
  Sender: FDA-Public Use
  Company Number: US-PFIZER INC-PV202200109196

PATIENT
  Age: 65 Year
  Sex: Female
  Weight: 106.12 kg

DRUGS (21)
  1. RETACRIT [Suspect]
     Active Substance: EPOETIN ALFA-EPBX
     Indication: End stage renal disease
     Dosage: UNK, 4000 UN/ML
  2. RETACRIT [Suspect]
     Active Substance: EPOETIN ALFA-EPBX
     Dosage: 8000 IU
     Dates: end: 20220302
  3. RETACRIT [Suspect]
     Active Substance: EPOETIN ALFA-EPBX
     Dosage: 10000 IU, 3TIMES PER WEEK EVERY MONDAY, WEDNESDAY,FRIDAY/GIVE IHV VIA HD MACHINE LAST HR OF DIALYSIS
     Route: 042
     Dates: start: 20220302
  4. ZYLOPRIM [Concomitant]
     Active Substance: ALLOPURINOL
     Dosage: 100 MG, DAILY, (TAKE 100 MG BY MOUTH DAILY)
     Route: 048
  5. ELAVIL [Concomitant]
     Active Substance: AMITRIPTYLINE HYDROCHLORIDE
     Dosage: 25 MG, 3X/DAY, (TAKE 25 MG BY MOUTH 3 (THREE) TIMES A DAY)
     Route: 048
  6. ECOTRIN [Concomitant]
     Active Substance: ASPIRIN
     Dosage: 81 MG, 1X/DAY, (TAKE 81 MG BY MOUTH AT BEDTIME)
     Route: 048
  7. LIPITOR [Concomitant]
     Active Substance: ATORVASTATIN CALCIUM
     Dosage: 40 MG, 1X/DAY, (TAKE 40 MG BY MOUTH AT BEDTIME)
     Route: 048
  8. COREG [Concomitant]
     Active Substance: CARVEDILOL
     Dosage: 6.25 MG, 2X/DAY, (TAKE 6.25 MG BY MOUTH 2 TIMES A DAY WITH BREAKFAST AND DINNER)
     Route: 048
  9. VITAMIN D3 [Concomitant]
     Active Substance: CHOLECALCIFEROL
     Dosage: 25 UG, 2X/DAY, (TAKE 2 TABLETS (50 MCG TOTAL) BY MOUTH DAILY)
     Route: 048
  10. HECTOROL [Concomitant]
     Active Substance: DOXERCALCIFEROL
     Dosage: 2 UG/ML (INJECT 1 ML (2-MCG-TOTAL) INTO THE VEIN 3 (THREE) TIMES-A-WEEK)
     Route: 042
  11. LEXAPRO [Concomitant]
     Active Substance: ESCITALOPRAM OXALATE
     Dosage: 20 MG, 1X/DAY, (TAKE 20 MG BY MOUTH AT BEDTIME AS NEEDED)
     Route: 048
  12. FERROUS SULFATE [Concomitant]
     Active Substance: FERROUS SULFATE
     Dosage: 325 MG, 3X/DAY, (TAKE 325 MG BY MOUTH 3 (THREE) TIMES A DAY WITH MEALS)
     Route: 048
  13. FLORINEF ACETATE [Concomitant]
     Active Substance: FLUDROCORTISONE ACETATE
     Dosage: 0.1 MG, DAILY, (TAKE 1 TABLET (01 MG TOTAL) BY MOUTH DAILY)
     Route: 048
  14. ADVAIR HFA [Concomitant]
     Active Substance: FLUTICASONE PROPIONATE\SALMETEROL XINAFOATE
     Dosage: UNK, 2X/DAY, (INHALE 2 PUFFS INTO THE LUNGS 2 (TWO) TIMES A DAY)
  15. HEPARIN SODIUM, PORCINE [Concomitant]
     Active Substance: HEPARIN SODIUM
     Dosage: INJECT INTO VEIN 3 TIME A WEEKS. WITH DIALYSIS:2000UI BOLUS THEN 500UI/HR,STOP 1HR BEFORE END OF TX
  16. TRESIBA [Concomitant]
     Active Substance: INSULIN DEGLUDEC
     Dosage: 60 IU, 3X/DAY, (INJECT 60 UNITS UNDER THE SKIN 3 TIMES A DAY. 60 UNITS 3 TIMES DAILY)
     Route: 058
  17. SYNTHROID [Concomitant]
     Active Substance: LEVOTHYROXINE SODIUM
     Dosage: 100 UG, DAILY, (TAKE 100 MCG BY MOUTH DAILY)
     Route: 048
  18. DITROPAN XL [Concomitant]
     Active Substance: OXYBUTYNIN CHLORIDE
     Dosage: 10 MG, 1X/DAY, (TAKE 10 MG BY MOUTH AT BEDTIME)
     Route: 048
  19. PROTONIX [Concomitant]
     Active Substance: PANTOPRAZOLE SODIUM
     Dosage: 40 MG, DAILY, (TAKE 40 MG BY MOUTH DAILY)
     Route: 048
  20. GLYCOLAX [Concomitant]
     Active Substance: POLYETHYLENE GLYCOL 3350
     Dosage: 17 G, DAILY, (TAKE 17 G BY MOUTH DAILY)
     Route: 048
  21. RENVELA [Concomitant]
     Active Substance: SEVELAMER CARBONATE
     Dosage: 800 MG, 3X/DAY, (TAKE 800 MG BY MOUTH 3 (THREE) TIMES A DAY WITH MEALS)
     Route: 048

REACTIONS (3)
  - Acute myocardial infarction [Unknown]
  - Product prescribing error [Unknown]
  - Product dose confusion [Unknown]

NARRATIVE: CASE EVENT DATE: 20220302
